FAERS Safety Report 7935250-0 (Version None)
Quarter: 2011Q4

REPORT INFORMATION
  Report Type: 
  Country: None (occurrence: None)
  Receive Date: 20111122
  Receipt Date: 20111117
  Transmission Date: 20120403
  Serious: Yes (Death)
  Sender: FDA-Public Use
  Company Number: US-PFIZER INC-2011282012

PATIENT
  Sex: Male

DRUGS (3)
  1. MORPHINE SULFATE [Suspect]
  2. AMPHETAMINE SULFATE [Suspect]
  3. ALPRAZOLAM [Suspect]

REACTIONS (1)
  - TOXICITY TO VARIOUS AGENTS [None]
